FAERS Safety Report 9207156 (Version 1)
Quarter: 2013Q1

REPORT INFORMATION
  Report Type: Spontaneous
  Country: US (occurrence: None)
  Receive Date: 20120802
  Receipt Date: 20120802
  Transmission Date: 20140127
  Serious: Yes (Hospitalization)
  Sender: FDA-Public Use
  Company Number: 2011029433

PATIENT
  Age: 44 Year
  Sex: Male
  Weight: 93.9 kg

DRUGS (9)
  1. CARIMUNE NF [Suspect]
     Indication: DERMATOMYOSITIS
     Dosage: 96 GM DAILY X 2 DAYS, START AT 50 ML/HR X15 MIN,THEN 100 ML/HR X 15 MIN, THEN 15 MIN, THEN 150ML/HR X 15
     Route: 042
     Dates: start: 20110409
  2. PRIMAXIN (IMIPENEM) [Concomitant]
  3. ZYVOX (LINEZOLID) [Concomitant]
  4. PREDNISONE (PREDNISONE) [Concomitant]
  5. OMEPRAZOLE (OMEPRAZOLE) [Concomitant]
  6. WARFARIN (WARFARIN) [Concomitant]
  7. PYRIDOXINE (PYRIDOXINE) [Concomitant]
  8. BACTRIM DS (BACTRIM/00086101) [Concomitant]
  9. VITAMIN B6 (PYRIDOXINE HYDROCHLORIDE) [Concomitant]

REACTIONS (1)
  - Pyrexia [None]
